FAERS Safety Report 9841459 (Version 1)
Quarter: 2013Q4

REPORT INFORMATION
  Report Type: Spontaneous
  Country: US (occurrence: None)
  Receive Date: 20131211
  Receipt Date: 20131211
  Transmission Date: 20140711
  Serious: Yes (Other)
  Sender: FDA-Public Use
  Company Number: ALL1-2012-01036

PATIENT
  Sex: 0

DRUGS (1)
  1. MAS [Suspect]
     Indication: PRODUCT USED FOR UNKNOWN INDICATION
     Route: 048
     Dates: start: 20120214

REACTIONS (3)
  - Heart rate increased [None]
  - Hypertension [None]
  - Tremor [None]
